FAERS Safety Report 14586499 (Version 1)
Quarter: 2018Q1

REPORT INFORMATION
  Report Type: Spontaneous
  Country: US (occurrence: US)
  Receive Date: 20180228
  Receipt Date: 20180228
  Transmission Date: 20180509
  Serious: No
  Sender: FDA-Public Use
  Company Number: None

PATIENT
  Age: 68 Year
  Sex: Female
  Weight: 53.07 kg

DRUGS (1)
  1. CLIMARA [Suspect]
     Active Substance: ESTRADIOL
     Indication: HORMONE REPLACEMENT THERAPY
     Dosage: 0.1MG 12/3 MO. 1 PATCH/WEEK ON SKIN
     Route: 061
     Dates: start: 20020918

REACTIONS (5)
  - Product substitution issue [None]
  - Product adhesion issue [None]
  - Wrong schedule [None]
  - Insurance issue [None]
  - Drug ineffective [None]
